FAERS Safety Report 12615270 (Version 1)
Quarter: 2016Q3

REPORT INFORMATION
  Report Type: Spontaneous
  Country: CN (occurrence: CN)
  Receive Date: 20160802
  Receipt Date: 20160802
  Transmission Date: 20161109
  Serious: Yes (Death, Hospitalization)
  Sender: FDA-Public Use
  Company Number: CN-PFIZER INC-2016276938

PATIENT
  Age: 74 Year
  Sex: Male

DRUGS (1)
  1. SUTENT [Suspect]
     Active Substance: SUNITINIB MALATE
     Indication: RENAL CELL CARCINOMA
     Dosage: UNK

REACTIONS (2)
  - Death [Fatal]
  - Gastric haemorrhage [Unknown]

NARRATIVE: CASE EVENT DATE: 2016
